FAERS Safety Report 7837727 (Version 4)
Quarter: 2012Q4

REPORT INFORMATION
  Report Type: 
  Country: US (occurrence: US)
  Receive Date: 20110302
  Receipt Date: 20121005
  Transmission Date: 20130627
  Serious: Yes (Hospitalization, Other)
  Sender: FDA-Public Use
  Company Number: US-PFIZER INC-2010034400

PATIENT
  Age: 72 Year
  Sex: Female

DRUGS (17)
  1. DILANTIN [Suspect]
     Indication: CONVULSION
     Dosage: 100 mg, 2x/day
     Route: 048
     Dates: start: 20010403, end: 20010420
  2. TYLENOL [Concomitant]
     Indication: PAIN
     Dosage: 325mg tablet, two tablets for every 4 to 6 hours
     Route: 048
     Dates: start: 20010403
  3. GLYCERIN [Concomitant]
     Dosage: when necessary
     Route: 054
     Dates: start: 20010403
  4. THEREVAC [Concomitant]
     Dosage: when necessary
     Route: 054
     Dates: start: 20010403
  5. COLACE [Concomitant]
     Dosage: 100 mg, 2x/day
     Route: 048
     Dates: start: 20010403
  6. PEPCID [Concomitant]
     Dosage: 20 mg, 2x/day
     Route: 048
     Dates: start: 20010403
  7. MYLANTA [Concomitant]
     Indication: DYSPEPSIA
     Dosage: 15 ml, every 4 hrs
     Route: 048
     Dates: start: 20010403
  8. DULCOLAX [Concomitant]
     Dosage: 10 mg daily
     Route: 054
     Dates: start: 20010403
  9. MICRO-K [Concomitant]
     Dosage: 10mEq capsule, two capsules daily
     Route: 048
     Dates: start: 20010404
  10. TAMOXIFEN [Concomitant]
     Dosage: 10mg tablets, one tablet daily
     Route: 048
     Dates: start: 20010404
  11. ADALAT [Concomitant]
     Dosage: 30mg two tablets daily
     Route: 048
     Dates: start: 20010404
  12. LEVOTHROID [Concomitant]
     Dosage: 0.125 mg tablets, orally one tablet daily
     Route: 048
     Dates: start: 20010404
  13. NOLVADEX [Concomitant]
     Dosage: 10 mg, 1x/day
     Route: 048
     Dates: start: 20010404
  14. CELEXA [Concomitant]
     Dosage: 20mg tablets, half tablet (10mg) daily
     Route: 048
     Dates: start: 20010404, end: 20010420
  15. GLUCOPHAGE [Concomitant]
     Dosage: 500 mg, 1x/day
     Route: 048
     Dates: start: 20010405
  16. SYNTHROID [Concomitant]
     Dosage: UNK
     Dates: start: 20010406
  17. K-DUR [Concomitant]
     Dosage: UNK
     Dates: start: 20010406

REACTIONS (1)
  - Stevens-Johnson syndrome [Unknown]
